FAERS Safety Report 7282058-8 (Version None)
Quarter: 2011Q1

REPORT INFORMATION
  Report Type: 
  Country: None (occurrence: None)
  Receive Date: 20110208
  Receipt Date: 20110127
  Transmission Date: 20110831
  Serious: Yes (Hospitalization)
  Sender: FDA-Public Use
  Company Number: JP-ASTRAZENECA-2011SE03674

PATIENT
  Age: 22 Year
  Sex: Female
  Weight: 63 kg

DRUGS (9)
  1. OMEPRAL [Suspect]
     Indication: REFLUX OESOPHAGITIS
     Route: 048
     Dates: start: 20100101
  2. PARIET [Concomitant]
     Route: 048
     Dates: start: 20101018
  3. ELIETEN [Concomitant]
     Dosage: DOSE UNKNOWN
     Route: 048
     Dates: end: 20101122
  4. PRIMPERAN TAB [Concomitant]
     Route: 048
     Dates: start: 20101122, end: 20101124
  5. KAMOSTAAL [Concomitant]
     Route: 048
     Dates: start: 20101122, end: 20101124
  6. TAKEPRON [Concomitant]
     Route: 048
     Dates: end: 20101122
  7. GANATON [Concomitant]
     Route: 048
     Dates: start: 20101122, end: 20101124
  8. GASMOTIN [Suspect]
     Route: 048
     Dates: start: 20100101
  9. PARIET [Concomitant]
     Route: 048
     Dates: start: 20101122, end: 20101124

REACTIONS (2)
  - LIVER DISORDER [None]
  - JAUNDICE [None]
